FAERS Safety Report 8590591-1 (Version None)
Quarter: 2012Q3

REPORT INFORMATION
  Report Type: 
  Country: None (occurrence: None)
  Receive Date: 20120813
  Receipt Date: 20120806
  Transmission Date: 20120928
  Serious: Yes (Other)
  Sender: FDA-Public Use
  Company Number: US-INCYTE CORPORATION-2012IN001468

PATIENT
  Sex: Female

DRUGS (5)
  1. AMBIEN [Concomitant]
  2. PRILOSEC [Concomitant]
  3. JAKAFI [Suspect]
     Dosage: 10 MG, BID
  4. JAKAFI [Suspect]
     Indication: MYELOFIBROSIS
     Dosage: 10 MG, BID
     Dates: start: 20120601
  5. JAKAFI [Suspect]
     Dosage: 5 MG, BID

REACTIONS (2)
  - HAEMOLYSIS [None]
  - WHITE BLOOD CELL COUNT INCREASED [None]
